FAERS Safety Report 5382257-6 (Version None)
Quarter: 2007Q3

REPORT INFORMATION
  Report Type: 
  Country: None (occurrence: None)
  Receive Date: 20070705
  Receipt Date: 20070619
  Transmission Date: 20080115
  Serious: Yes (Hospitalization)
  Sender: FDA-Public Use
  Company Number: T200700719

PATIENT
  Age: 71 Year
  Sex: Female

DRUGS (15)
  1. OPTIRAY 350 [Suspect]
     Indication: ANGIOGRAM
     Dosage: 240 ML, SINGLE, INTRA-ARTERIAL
     Route: 013
     Dates: start: 20070503, end: 20070503
  2. PLAVIX [Concomitant]
  3. ASPIRIN [Concomitant]
  4. TENORMIN [Concomitant]
  5. NORVASC /00972401/ (AMLODIPINE) [Concomitant]
  6. MEPHANOL (ALLOPURINOL) [Concomitant]
  7. LEVOTHYROXINE SODIUM [Concomitant]
  8. ALDACTONE [Concomitant]
  9. KCL-RETARD ZYMA             (POTASSIUM CHLORIDE) [Concomitant]
  10. VISALINE   (ASCORBIC ACID, BETACAROTENE, BUPHENINE HYDROCHLORIDE, TOCO [Concomitant]
  11. ACETAMINOPHEN [Concomitant]
  12. NITRODERM [Concomitant]
  13. INSULIN MIXTARD                  /00030504/ (INSULIN INJECTION, ISOPHA [Concomitant]
  14. CRESTOR                      /01588601/ (ROSUVASTATIN) [Concomitant]
  15. DANCOR        (NICORANDIL) [Concomitant]

REACTIONS (1)
  - RENAL FAILURE ACUTE [None]
